FAERS Safety Report 21739206 (Version 1)
Quarter: 2022Q4

REPORT INFORMATION
  Report Type: Report from Study
  Country: CA (occurrence: CA)
  Receive Date: 20221216
  Receipt Date: 20221216
  Transmission Date: 20230113
  Serious: Yes (Other)
  Sender: FDA-Public Use
  Company Number: CA-ABBVIE-22K-028-4364679-00

PATIENT
  Sex: Male

DRUGS (2)
  1. HUMIRA [Suspect]
     Active Substance: ADALIMUMAB
     Indication: Ankylosing spondylitis
     Route: 058
     Dates: start: 20141003
  2. COVID-19 VACCINE NOS [Suspect]
     Active Substance: COVID-19 VACCINE NOS
     Indication: COVID-19 prophylaxis
     Dosage: COVID VACCINE DOSE
     Route: 030
     Dates: start: 202203, end: 202203

REACTIONS (15)
  - Inhibitory drug interaction [Not Recovered/Not Resolved]
  - Therapeutic response shortened [Unknown]
  - Arthritis [Not Recovered/Not Resolved]
  - Nerve compression [Unknown]
  - Abdominal distension [Unknown]
  - Flatulence [Unknown]
  - Crohn^s disease [Unknown]
  - Back pain [Unknown]
  - Therapeutic product effect decreased [Not Recovered/Not Resolved]
  - Crohn^s disease [Not Recovered/Not Resolved]
  - Bowel movement irregularity [Unknown]
  - Back pain [Not Recovered/Not Resolved]
  - Crohn^s disease [Unknown]
  - Abdominal distension [Not Recovered/Not Resolved]
  - Musculoskeletal pain [Unknown]

NARRATIVE: CASE EVENT DATE: 20220101
